FAERS Safety Report 19312978 (Version 1)
Quarter: 2021Q2

REPORT INFORMATION
  Report Type: Spontaneous
  Country: CN (occurrence: CN)
  Receive Date: 20210527
  Receipt Date: 20210527
  Transmission Date: 20210717
  Serious: Yes (Hospitalization)
  Sender: FDA-Public Use
  Company Number: CN-TEVA-2021-CN-1914788

PATIENT
  Age: 9 Year
  Sex: Male

DRUGS (10)
  1. CYCLOSPORINE A [Suspect]
     Active Substance: CYCLOSPORINE
     Indication: PROPHYLAXIS AGAINST GRAFT VERSUS HOST DISEASE
     Dosage: AFTER COMPLETION OF THE TRANSPLANTATION
     Route: 048
  2. CYCLOSPORINE A [Suspect]
     Active Substance: CYCLOSPORINE
     Indication: PROPHYLAXIS AGAINST GRAFT VERSUS HOST DISEASE
     Dosage: 3 MG/KG DAILY; AT DAY ?10
     Route: 042
  3. ARA?C [Concomitant]
     Active Substance: CYTARABINE
     Indication: MYELODYSPLASTIC SYNDROME
     Dosage: 2 G/M2; 5 CONSECUTIVE DAYS FROM DAY ?13 TO DAY ?9; APLASIA INDUCING SALVAGE THERAPY OF FA5?BUCY C...
     Route: 065
  4. MYCOPHENOLATE MOFETIL. [Concomitant]
     Active Substance: MYCOPHENOLATE MOFETIL
     Indication: PROPHYLAXIS AGAINST GRAFT VERSUS HOST DISEASE
     Dosage: 10 MG/KG DAILY; STARTING FROM DAY +7 AND TAPERED AFTER ENGRAFTMENT
     Route: 065
  5. METHOTREXATE. [Concomitant]
     Active Substance: METHOTREXATE
     Indication: PROPHYLAXIS AGAINST GRAFT VERSUS HOST DISEASE
     Dosage: AT DAY +1
     Route: 065
  6. CYCLOPHOSPHAMIDE. [Concomitant]
     Active Substance: CYCLOPHOSPHAMIDE
     Indication: MYELODYSPLASTIC SYNDROME
     Dosage: 1.8 G/M2 DAY ?4 TO DAY ?3; APLASIA INDUCING SALVAGE THERAPY OF FA5?BUCY CONDITIONING REGIMEN
     Route: 065
  7. METHOTREXATE. [Concomitant]
     Active Substance: METHOTREXATE
     Indication: PROPHYLAXIS AGAINST GRAFT VERSUS HOST DISEASE
     Dosage: AT DAY +3 AND +6
     Route: 065
  8. FLUDARABINE [Concomitant]
     Active Substance: FLUDARABINE PHOSPHATE
     Indication: MYELODYSPLASTIC SYNDROME
     Dosage: 30 MG/M2 DAILY; APLASIA INDUCING SALVAGE THERAPY OF FA5?BUCY CONDITIONING REGIMEN
     Route: 065
  9. BUSULFAN. [Concomitant]
     Active Substance: BUSULFAN
     Indication: MYELODYSPLASTIC SYNDROME
     Dosage: 3.2 MG/KG DAILY; AT DAY ?7 TO DAY ?5; APLASIA INDUCING SALVAGE THERAPY OF FA5?BUCY CONDITIONING REGI
     Route: 065
  10. METHYLPREDNISOLONE. [Concomitant]
     Active Substance: METHYLPREDNISOLONE
     Indication: SERUM SICKNESS
     Dosage: AT DAY ?4 TO GRANULOCYTE IMPLANTATION
     Route: 065

REACTIONS (4)
  - Psychotic disorder [Recovered/Resolved]
  - Status epilepticus [Recovered/Resolved]
  - Neurotoxicity [Recovered/Resolved]
  - Visual impairment [Recovered/Resolved]
